FAERS Safety Report 9024643 (Version 2)
Quarter: 2014Q2

REPORT INFORMATION
  Report Type: Spontaneous
  Country: JP (occurrence: JP)
  Receive Date: 20130120
  Receipt Date: 20140527
  Transmission Date: 20141212
  Serious: Yes (Hospitalization)
  Sender: FDA-Public Use
  Company Number: PHHY2013JP004491

PATIENT
  Sex: Female

DRUGS (11)
  1. CEFTRIAXONE SODIUM [Suspect]
     Indication: DIABETIC GANGRENE
     Dosage: 2 G, QOD
     Route: 042
  2. CEFTRIAXONE SODIUM [Suspect]
     Dosage: 2 G, QOD
     Route: 042
  3. INSULIN HUMAN [Concomitant]
  4. CLOPIDOGREL SULFATE [Concomitant]
  5. ASPIRIN [Concomitant]
  6. LANSOPRAZOLE [Concomitant]
  7. BISOPROLOL FUMARATE [Concomitant]
  8. NICORANDIL [Concomitant]
  9. ENALAPRIL MALEATE [Concomitant]
  10. ALFACALCIDOL [Concomitant]
  11. FOLATE [Concomitant]

REACTIONS (7)
  - Slow response to stimuli [Recovering/Resolving]
  - Speech disorder [Recovering/Resolving]
  - Eye disorder [Recovering/Resolving]
  - Prosopagnosia [Recovering/Resolving]
  - Altered state of consciousness [Recovering/Resolving]
  - Blood pressure decreased [Recovering/Resolving]
  - Drug level increased [Recovering/Resolving]
